FAERS Safety Report 9912281 (Version 2)
Quarter: 2014Q2

REPORT INFORMATION
  Report Type: Spontaneous
  Country: US (occurrence: US)
  Receive Date: 20140220
  Receipt Date: 20140410
  Transmission Date: 20141212
  Serious: Yes (Hospitalization)
  Sender: FDA-Public Use
  Company Number: US-BIOGENIDEC-2014BI016726

PATIENT
  Age: 69 Year
  Sex: Female

DRUGS (11)
  1. AVONEX [Suspect]
     Indication: MULTIPLE SCLEROSIS
     Dates: start: 2000
  2. AVONEX [Suspect]
     Indication: MULTIPLE SCLEROSIS
     Route: 030
     Dates: start: 20080213
  3. AVONEX [Suspect]
     Indication: MULTIPLE SCLEROSIS
     Route: 030
  4. BACLOFEN [Concomitant]
  5. CRESTOR [Concomitant]
  6. DIOVAN [Concomitant]
  7. EVISTA [Concomitant]
  8. LOPRESSOR HCT [Concomitant]
  9. PLAVIX [Concomitant]
  10. RAMIPRIL [Concomitant]
  11. TRICOR [Concomitant]

REACTIONS (1)
  - Myocardial infarction [Recovered/Resolved]
